FAERS Safety Report 8152415-6 (Version None)
Quarter: 2012Q1

REPORT INFORMATION
  Report Type: 
  Country: None (occurrence: None)
  Receive Date: 20120221
  Receipt Date: 20120209
  Transmission Date: 20120608
  Serious: Yes (Hospitalization)
  Sender: FDA-Public Use
  Company Number: CA-JNJFOC-20120202745

PATIENT
  Sex: Female
  Weight: 64 kg

DRUGS (5)
  1. REMICADE [Suspect]
     Dosage: 6TH INFUSION
     Route: 042
     Dates: start: 20111213
  2. CELEXA [Concomitant]
     Indication: ANXIETY
     Route: 048
  3. REMICADE [Suspect]
     Indication: CROHN'S DISEASE
     Route: 042
     Dates: start: 20110519
  4. SYNTHROID [Concomitant]
     Indication: HYPOTHYROIDISM
     Dosage: 1 TABLET
     Route: 048
  5. IMURAN [Concomitant]
     Indication: CROHN'S DISEASE
     Dosage: 2.5 TABLETS
     Route: 048

REACTIONS (1)
  - NEPHROLITHIASIS [None]
